FAERS Safety Report 18397064 (Version 11)
Quarter: 2022Q4

REPORT INFORMATION
  Report Type: Report from Study
  Country: US (occurrence: US)
  Receive Date: 20201019
  Receipt Date: 20221205
  Transmission Date: 20230113
  Serious: Yes (Other)
  Sender: FDA-Public Use
  Company Number: US-SHIRE-US202034307

PATIENT
  Age: 78 Year
  Sex: Female
  Weight: 59.864 kg

DRUGS (18)
  1. HUMAN IMMUNOGLOBULIN G\HYALURONIDASE RECOMBINANT HUMAN [Suspect]
     Active Substance: HUMAN IMMUNOGLOBULIN G\HYALURONIDASE RECOMBINANT HUMAN
     Indication: Immunodeficiency common variable
     Dosage: 30 MILLIGRAM, Q4WEEKS
     Route: 058
     Dates: start: 20191017
  2. HUMAN IMMUNOGLOBULIN G\HYALURONIDASE RECOMBINANT HUMAN [Suspect]
     Active Substance: HUMAN IMMUNOGLOBULIN G\HYALURONIDASE RECOMBINANT HUMAN
     Dosage: 22.5 GRAM, Q4WEEKS
     Route: 058
     Dates: start: 20191017
  3. AMBIEN [Concomitant]
     Active Substance: ZOLPIDEM TARTRATE
     Route: 065
  4. SINGULAIR [Concomitant]
     Active Substance: MONTELUKAST SODIUM
     Dosage: UNK
     Route: 065
  5. SYNTHROID [Concomitant]
     Active Substance: LEVOTHYROXINE SODIUM
     Dosage: UNK
     Route: 065
  6. PEPCID [Concomitant]
     Active Substance: FAMOTIDINE
     Dosage: UNK
     Route: 065
  7. ZYRTEC [Concomitant]
     Active Substance: CETIRIZINE HYDROCHLORIDE
     Dosage: UNK
     Route: 065
  8. PROLIA [Concomitant]
     Active Substance: DENOSUMAB
     Dosage: UNK
     Route: 065
  9. PLAVIX [Concomitant]
     Active Substance: CLOPIDOGREL BISULFATE
     Dosage: UNK
     Route: 065
  10. PERCOCET [Concomitant]
     Active Substance: ACETAMINOPHEN\OXYCODONE HYDROCHLORIDE
     Dosage: UNK
     Route: 065
  11. ACETAMINOPHEN [Concomitant]
     Active Substance: ACETAMINOPHEN
     Dosage: UNK
     Route: 065
  12. LIDOCAINE [Concomitant]
     Active Substance: LIDOCAINE
     Dosage: UNK
     Route: 065
  13. DIPHENHYDRAMINE [Concomitant]
     Active Substance: DIPHENHYDRAMINE
     Dosage: UNK
     Route: 065
  14. SODIUM CHLORIDE [Concomitant]
     Active Substance: SODIUM CHLORIDE
     Dosage: UNK
     Route: 065
  15. EPINEPHRINE [Concomitant]
     Active Substance: EPINEPHRINE
     Dosage: UNK
     Route: 065
  16. FOSAMAX [Concomitant]
     Active Substance: ALENDRONATE SODIUM
  17. MESALAMINE [Concomitant]
     Active Substance: MESALAMINE
  18. VANCOMYCIN HYDROCHLORIDE [Concomitant]
     Active Substance: VANCOMYCIN HYDROCHLORIDE

REACTIONS (19)
  - Diverticulitis [Unknown]
  - Colitis microscopic [Unknown]
  - Clostridium difficile infection [Unknown]
  - Urinary tract infection [Unknown]
  - Infusion site rash [Unknown]
  - Multiple allergies [Unknown]
  - Gastrointestinal infection [Unknown]
  - Drug hypersensitivity [Unknown]
  - Infusion related reaction [Recovered/Resolved]
  - Incorrect dose administered [Unknown]
  - Sinusitis [Unknown]
  - Abdominal discomfort [Unknown]
  - Infusion site pain [Unknown]
  - Infusion site mass [Unknown]
  - Infusion site extravasation [Unknown]
  - Fatigue [Recovered/Resolved]
  - Upper limb fracture [Unknown]
  - Urine output decreased [Unknown]
  - Nasopharyngitis [Recovered/Resolved]

NARRATIVE: CASE EVENT DATE: 20201001
